FAERS Safety Report 19768873 (Version 1)
Quarter: 2021Q3

REPORT INFORMATION
  Report Type: Spontaneous
  Country: CA (occurrence: CA)
  Receive Date: 20210831
  Receipt Date: 20210831
  Transmission Date: 20211014
  Serious: Yes (Hospitalization, Other)
  Sender: FDA-Public Use
  Company Number: CA-AUROBINDO-AUR-APL-2021-015325

PATIENT
  Age: 36 Year
  Sex: Female

DRUGS (12)
  1. DULOXETINE DELAYED RELEASE CAPSULES [Suspect]
     Active Substance: DULOXETINE
     Indication: PAIN
     Dosage: 60 MILLIGRAM, DAILY (FOR SEVERAL MONTHS)
     Route: 048
  2. PREGABALIN CAPSULES [Interacting]
     Active Substance: PREGABALIN
     Indication: PAIN
     Dosage: 150 MILLIGRAM, DAILY (FOR SEVERAL MONTHS)
     Route: 048
  3. PREGABALIN CAPSULES [Interacting]
     Active Substance: PREGABALIN
     Indication: ANALGESIC THERAPY
  4. AMITRIPTYLINE [Suspect]
     Active Substance: AMITRIPTYLINE
     Indication: ANALGESIC THERAPY
  5. ACETAMINOPHENE [Interacting]
     Active Substance: ACETAMINOPHEN
     Indication: ANALGESIC THERAPY
  6. ACETAMINOPHENE [Interacting]
     Active Substance: ACETAMINOPHEN
     Indication: PAIN
     Dosage: 325 MILLIGRAM, DAILY (FOR SEVERAL MONTHS)
     Route: 048
  7. DULOXETINE DELAYED RELEASE CAPSULES [Interacting]
     Active Substance: DULOXETINE
     Indication: ANALGESIC THERAPY
  8. AMITRIPTYLINE [Suspect]
     Active Substance: AMITRIPTYLINE
     Indication: PAIN
     Dosage: 10 MILLIGRAM (AT BEDTIME)
     Route: 048
  9. TRAMADOL HYDROCHLORIDE. [Interacting]
     Active Substance: TRAMADOL HYDROCHLORIDE
     Indication: ANALGESIC THERAPY
  10. TRIAZOLAM. [Interacting]
     Active Substance: TRIAZOLAM
     Indication: PAIN
     Dosage: 0.25 MILLIGRAM, DAILY (FOR SEVERAL MONTHS)
     Route: 048
  11. TRIAZOLAM. [Interacting]
     Active Substance: TRIAZOLAM
     Indication: ANALGESIC THERAPY
  12. TRAMADOL HYDROCHLORIDE. [Interacting]
     Active Substance: TRAMADOL HYDROCHLORIDE
     Indication: PAIN
     Dosage: 187.5 MILLIGRAM, DAILY (FOR SEVERAL MONTHS)
     Route: 048

REACTIONS (11)
  - Dyskinesia [Recovered/Resolved]
  - Labelled drug-drug interaction issue [Recovered/Resolved]
  - Dyspnoea [Recovered/Resolved]
  - Tachycardia [Recovered/Resolved]
  - Tremor [Recovered/Resolved]
  - Hyperhidrosis [Recovered/Resolved]
  - Serotonin syndrome [Recovered/Resolved]
  - Myoclonus [Recovered/Resolved]
  - Agitation [Recovered/Resolved]
  - Nervousness [Recovered/Resolved]
  - Muscle rigidity [Recovered/Resolved]
